FAERS Safety Report 9632796 (Version 1)
Quarter: 2013Q4

REPORT INFORMATION
  Report Type: Spontaneous
  Country: US (occurrence: US)
  Receive Date: 20131018
  Receipt Date: 20131018
  Transmission Date: 20140711
  Serious: No
  Sender: FDA-Public Use
  Company Number: US-009507513-1310USA004787

PATIENT
  Sex: Male

DRUGS (1)
  1. PROVENTIL [Suspect]
     Indication: ASTHMA

REACTIONS (4)
  - Underdose [Unknown]
  - Drug administration error [Unknown]
  - Therapeutic response delayed [Unknown]
  - Product quality issue [Unknown]
